FAERS Safety Report 9912161 (Version 1)
Quarter: 2014Q1

REPORT INFORMATION
  Report Type: Report from Study
  Country: US (occurrence: US)
  Receive Date: 20140220
  Receipt Date: 20140220
  Transmission Date: 20141002
  Serious: Yes (Hospitalization)
  Sender: FDA-Public Use
  Company Number: US-BRISTOL-MYERS SQUIBB COMPANY-20192969

PATIENT
  Age: 58 Year
  Sex: Female

DRUGS (5)
  1. ETOPOSIDE [Suspect]
     Indication: SMALL CELL LUNG CANCER
     Dosage: LAST DOSE ON 24JAN14
     Route: 042
     Dates: start: 20140122
  2. CARBOPLATIN [Suspect]
     Indication: SMALL CELL LUNG CANCER
     Dosage: STOP DATE:24JAN14
     Route: 042
     Dates: start: 20140122
  3. NEUPOGEN [Concomitant]
     Dates: start: 20140206
  4. VANCOMYCIN [Concomitant]
     Dates: start: 20140206
  5. CEFEPIME HCL [Concomitant]
     Dates: start: 20140206

REACTIONS (1)
  - Febrile neutropenia [Not Recovered/Not Resolved]
